FAERS Safety Report 10220833 (Version 4)
Quarter: 2014Q3

REPORT INFORMATION
  Report Type: Spontaneous
  Country: JP (occurrence: JP)
  Receive Date: 20140606
  Receipt Date: 20140815
  Transmission Date: 20150326
  Serious: Yes (Death, Other)
  Sender: FDA-Public Use
  Company Number: JP-JNJFOC-20140602753

PATIENT
  Age: 74 Year
  Sex: Female
  Weight: 45 kg

DRUGS (11)
  1. REMINYL [Suspect]
     Active Substance: GALANTAMINE
     Indication: HYDROCEPHALUS
     Route: 048
     Dates: start: 20140507, end: 20140508
  2. SYMMETREL [Concomitant]
     Active Substance: AMANTADINE HYDROCHLORIDE
     Indication: CEREBRAL INFARCTION
     Route: 048
     Dates: start: 20131127, end: 20140518
  3. ENSURE [Concomitant]
     Active Substance: AMINO ACIDS\DEXTROSE\ELECTROLYTES NOS\SOYBEAN OIL\VITAMINS
     Route: 048
     Dates: start: 20140508, end: 20140518
  4. ISOZOL [Suspect]
     Active Substance: THIAMYLAL SODIUM
     Indication: PRODUCT USED FOR UNKNOWN INDICATION
     Dosage: 500MG/20ML
     Route: 050
     Dates: start: 20140513, end: 20140514
  5. PROMAC (POLAPREZINC) [Concomitant]
     Active Substance: POLAPREZINC
     Indication: ZINC DEFICIENCY
     Route: 048
     Dates: start: 20140307, end: 20140518
  6. LASIX [Concomitant]
     Active Substance: FUROSEMIDE
     Indication: PYREXIA
     Route: 048
     Dates: start: 20131207
  7. SERMION [Concomitant]
     Active Substance: NICERGOLINE
     Indication: CEREBRAL INFARCTION
     Route: 048
     Dates: start: 20131118, end: 20140518
  8. REMINYL [Suspect]
     Active Substance: GALANTAMINE
     Indication: DEMENTIA
     Route: 048
     Dates: start: 20140507, end: 20140508
  9. SYMMETREL [Concomitant]
     Active Substance: AMANTADINE HYDROCHLORIDE
     Indication: BRAIN HERNIATION
     Route: 048
     Dates: start: 20131127, end: 20140518
  10. ALDACTONE [Concomitant]
     Active Substance: SPIRONOLACTONE
     Indication: PYREXIA
     Route: 048
     Dates: start: 20131207
  11. SERMION [Concomitant]
     Active Substance: NICERGOLINE
     Indication: BRAIN HERNIATION
     Route: 048
     Dates: start: 20131118, end: 20140518

REACTIONS (2)
  - Clonic convulsion [Unknown]
  - Cardiac failure [Fatal]

NARRATIVE: CASE EVENT DATE: 20140508
